FAERS Safety Report 5912162-5 (Version None)
Quarter: 2008Q4

REPORT INFORMATION
  Report Type: 
  Country: None (occurrence: None)
  Receive Date: 20081003
  Receipt Date: 20081003
  Transmission Date: 20090506
  Serious: Yes (Other)
  Sender: FDA-Public Use
  Company Number: None

PATIENT
  Age: 8 Year
  Sex: Male
  Weight: 31 kg

DRUGS (8)
  1. SINGULAIR [Suspect]
     Indication: ASTHMA
     Dosage: 5 MG Q HS PO
     Route: 048
     Dates: start: 20061208, end: 20080522
  2. SINGULAIR [Suspect]
     Indication: RHINITIS ALLERGIC
     Dosage: 5 MG Q HS PO
     Route: 048
     Dates: start: 20061208, end: 20080522
  3. XOPENEX HFA [Concomitant]
  4. NASONEX [Concomitant]
  5. CONCERTA [Concomitant]
  6. ZYRTEC [Concomitant]
  7. ADVAIR HFA [Concomitant]
  8. CLONIDINE [Concomitant]

REACTIONS (8)
  - AGGRESSION [None]
  - ANGER [None]
  - ATTENTION DEFICIT/HYPERACTIVITY DISORDER [None]
  - CRYING [None]
  - DEPRESSION [None]
  - POOR QUALITY SLEEP [None]
  - SELF INJURIOUS BEHAVIOUR [None]
  - VIOLENCE-RELATED SYMPTOM [None]
